FAERS Safety Report 12683479 (Version 1)
Quarter: 2016Q3

REPORT INFORMATION
  Report Type: Spontaneous
  Country: US (occurrence: None)
  Receive Date: 20160824
  Receipt Date: 20160824
  Transmission Date: 20161109
  Serious: Yes (Hospitalization)
  Sender: FDA-Public Use
  Company Number: None

PATIENT
  Age: 40 Year
  Sex: Female
  Weight: 102.5 kg

DRUGS (12)
  1. MEROPENEM. [Concomitant]
     Active Substance: MEROPENEM
  2. MORPHINE [Concomitant]
     Active Substance: MORPHINE
  3. GABAPENTIN. [Concomitant]
     Active Substance: GABAPENTIN
  4. HYDROCHLOROTHIAZIDE. [Concomitant]
     Active Substance: HYDROCHLOROTHIAZIDE
  5. HYDROCODONE-ACETAMINOPHEN [Concomitant]
     Active Substance: ACETAMINOPHEN\HYDROCODONE
  6. INSULIN GLARGINE [Concomitant]
     Active Substance: INSULIN GLARGINE
  7. METOPROLOL TARTRATE. [Concomitant]
     Active Substance: METOPROLOL TARTRATE
  8. VANCOMYCIN [Suspect]
     Active Substance: VANCOMYCIN
     Indication: DIABETIC FOOT INFECTION
     Route: 042
     Dates: start: 20160714, end: 20160717
  9. RANITIDINE. [Concomitant]
     Active Substance: RANITIDINE
  10. PIPERACILLIN/TAZOBACTAM, 4.5 GRAM [Suspect]
     Active Substance: PIPERACILLIN SODIUM\TAZOBACTAM SODIUM
     Indication: DIABETIC FOOT INFECTION
     Route: 042
     Dates: start: 20160714, end: 20160722
  11. PRAVASTATIN. [Concomitant]
     Active Substance: PRAVASTATIN
  12. INSULIN ASPART [Concomitant]
     Active Substance: INSULIN ASPART

REACTIONS (7)
  - Infusion related reaction [None]
  - Dialysis [None]
  - Linear IgA disease [None]
  - Hypotension [None]
  - Infusion [None]
  - Acute kidney injury [None]
  - Rash [None]

NARRATIVE: CASE EVENT DATE: 20160718
